FAERS Safety Report 4865072-9 (Version None)
Quarter: 2005Q4

REPORT INFORMATION
  Report Type: 
  Country: None (occurrence: None)
  Receive Date: 20051223
  Receipt Date: 20051209
  Transmission Date: 20060501
  Serious: Yes (Hospitalization)
  Sender: FDA-Public Use
  Company Number: FRWYE218409DEC05

PATIENT
  Age: 19 Year
  Sex: Male

DRUGS (2)
  1. ENBREL [Suspect]
     Indication: ANKYLOSING SPONDYLITIS
     Route: 058
     Dates: start: 20050301
  2. SULFASALAZINE [Concomitant]
     Indication: ANKYLOSING SPONDYLITIS
     Route: 065
     Dates: start: 20040715

REACTIONS (5)
  - CONJUNCTIVAL HYPERAEMIA [None]
  - DRUG INEFFECTIVE [None]
  - HYPOPYON [None]
  - IRIDOCYCLITIS [None]
  - KERATITIS [None]
